FAERS Safety Report 20029619 (Version 1)
Quarter: 2021Q4

REPORT INFORMATION
  Report Type: Spontaneous
  Country: US (occurrence: US)
  Receive Date: 20211103
  Receipt Date: 20211103
  Transmission Date: 20220303
  Serious: No
  Sender: FDA-Public Use
  Company Number: US-UPSHER-SMITH LABORATORIES, LLC-2021USL00454

PATIENT
  Sex: Female
  Weight: 63.492 kg

DRUGS (7)
  1. JANTOVEN [Suspect]
     Active Substance: WARFARIN SODIUM
     Indication: Mitral valve replacement
     Dosage: 10 MG, 4X/WEEK (TUESDAY, THURSDAY, SATURDAY, AND SUNDAY) AT 9 AM
     Route: 048
  2. JANTOVEN [Suspect]
     Active Substance: WARFARIN SODIUM
     Dosage: 5 MG, 3X/WEEK (MONDAY, WEDNESDAY, AND FRIDAY) AT 9 AM
     Route: 048
  3. JANTOVEN [Suspect]
     Active Substance: WARFARIN SODIUM
     Dosage: 5 MG, 3X/WEEK (MONDAY, WEDNESDAY, AND FRIDAY) AT 9 PM
     Route: 048
     Dates: start: 2020
  4. JANTOVEN [Suspect]
     Active Substance: WARFARIN SODIUM
     Dosage: 10 MG, 4X/WEEK (TUESDAY, THURSDAY, SATURDAY, AND SUNDAY) AT 9 PM
     Route: 048
     Dates: start: 2020
  5. JANTOVEN [Suspect]
     Active Substance: WARFARIN SODIUM
     Indication: Mitral valve replacement
     Dosage: 5 MG, 1X/DAY (WITH THREE 1 MG TABLETS)
     Route: 048
     Dates: end: 2020
  6. JANTOVEN [Suspect]
     Active Substance: WARFARIN SODIUM
     Indication: Mitral valve replacement
     Dosage: 3 MG, 1X/DAY (WITH 5 MG)
     Route: 048
     Dates: end: 2020
  7. VITAMIN B12 [Concomitant]
     Active Substance: CYANOCOBALAMIN

REACTIONS (5)
  - Agitation [Not Recovered/Not Resolved]
  - Crying [Not Recovered/Not Resolved]
  - Reaction to excipient [Not Recovered/Not Resolved]
  - Reaction to colouring [Not Recovered/Not Resolved]
  - Unevaluable event [Not Recovered/Not Resolved]
